FAERS Safety Report 17906739 (Version 1)
Quarter: 2020Q2

REPORT INFORMATION
  Report Type: Spontaneous
  Country: US (occurrence: US)
  Receive Date: 20200616
  Receipt Date: 20200616
  Transmission Date: 20200714
  Serious: No
  Sender: FDA-Public Use
  Company Number: US-ROCHE-2406660

PATIENT
  Sex: Female

DRUGS (1)
  1. ACTEMRA [Suspect]
     Active Substance: TOCILIZUMAB
     Indication: MALAISE
     Dosage: 1 SYRINGE 162 MG/0.9 ML
     Route: 058
     Dates: start: 201908

REACTIONS (4)
  - Off label use [Unknown]
  - Confusional state [Unknown]
  - Somnolence [Unknown]
  - Intentional product use issue [Unknown]
